FAERS Safety Report 8123415 (Version 2)
Quarter: 2013Q2

REPORT INFORMATION
  Report Type: Spontaneous
  Country: GB (occurrence: GB)
  Receive Date: 20110907
  Receipt Date: 20130626
  Transmission Date: 20140414
  Serious: Yes (Disabling, Other)
  Sender: FDA-Public Use
  Company Number: GB-PFIZER INC-2011206749

PATIENT
  Age: 82 Year
  Sex: Female
  Weight: 70 kg

DRUGS (10)
  1. AMLODIPINE BESILATE [Suspect]
     Dosage: UNK
     Dates: start: 20110805
  2. ATENOLOL [Concomitant]
     Dosage: UNK
     Dates: start: 20110609
  3. CLOBETASOL PROPIONATE [Concomitant]
     Dosage: UNK
     Route: 065
     Dates: start: 20110512
  4. DICLOFENAC SODIUM [Concomitant]
     Dosage: UNK
     Dates: start: 20110512
  5. LISINOPRIL [Concomitant]
     Dosage: UNK
     Dates: start: 20110609
  6. MELOXICAM [Concomitant]
     Dosage: UNK
     Dates: start: 20110512
  7. NAPROXEN [Concomitant]
     Dosage: UNK
     Dates: start: 20110707
  8. QUININE [Concomitant]
     Dosage: UNK
     Dates: start: 20110510
  9. TRAMADOL [Concomitant]
     Dosage: UNK
     Dates: start: 20110628, end: 20110629
  10. VERAPAMIL HYDROCHLORIDE [Concomitant]
     Dosage: UNK
     Dates: start: 20110512

REACTIONS (3)
  - Vision blurred [Recovered/Resolved]
  - Syncope [Recovered/Resolved]
  - Nausea [Recovered/Resolved]
